FAERS Safety Report 6767895-8 (Version None)
Quarter: 2010Q2

REPORT INFORMATION
  Report Type: 
  Country: None (occurrence: None)
  Receive Date: 20100614
  Receipt Date: 20100604
  Transmission Date: 20101027
  Serious: Yes (Other)
  Sender: FDA-Public Use
  Company Number: GB-ABBOTT-10P-167-0639772-00

PATIENT
  Sex: Female

DRUGS (1)
  1. HUMIRA [Suspect]
     Indication: PSORIASIS
     Dosage: HAS HAD 6 INJECTIONS
     Route: 050
     Dates: start: 20100301

REACTIONS (5)
  - INAPPROPRIATE SCHEDULE OF DRUG ADMINISTRATION [None]
  - INJECTION SITE ERYTHEMA [None]
  - INJECTION SITE INFLAMMATION [None]
  - INJECTION SITE OEDEMA [None]
  - INJECTION SITE PAIN [None]
